FAERS Safety Report 23577402 (Version 2)
Quarter: 2024Q1

REPORT INFORMATION
  Report Type: Spontaneous
  Country: IT (occurrence: IT)
  Receive Date: 20240228
  Receipt Date: 20240308
  Transmission Date: 20240410
  Serious: Yes (Other)
  Sender: FDA-Public Use
  Company Number: None

PATIENT
  Age: 65 Year
  Sex: Female

DRUGS (6)
  1. YESCARTA [Suspect]
     Active Substance: AXICABTAGENE CILOLEUCEL
     Indication: Diffuse large B-cell lymphoma
     Route: 042
     Dates: start: 20231219, end: 20231219
  2. ACYCLOVIR [Concomitant]
     Active Substance: ACYCLOVIR
  3. BACTRIM [Concomitant]
     Active Substance: SULFAMETHOXAZOLE\TRIMETHOPRIM
  4. LEVETIRACETAM [Concomitant]
     Active Substance: LEVETIRACETAM
  5. ALPRAZOLAM [Concomitant]
     Active Substance: ALPRAZOLAM
  6. TRIMETHOPRIM [Concomitant]
     Active Substance: TRIMETHOPRIM

REACTIONS (3)
  - Immune effector cell-associated neurotoxicity syndrome [Recovered/Resolved]
  - Thrombocytopenia [Recovering/Resolving]
  - Cytokine release syndrome [Recovered/Resolved]

NARRATIVE: CASE EVENT DATE: 20231219
